FAERS Safety Report 6067225-3 (Version None)
Quarter: 2009Q1

REPORT INFORMATION
  Report Type: 
  Country: None (occurrence: None)
  Receive Date: 20090204
  Receipt Date: 20090204
  Transmission Date: 20090719
  Serious: Yes (Hospitalization)
  Sender: FDA-Public Use
  Company Number: None

PATIENT
  Sex: Female
  Weight: 76.7 kg

DRUGS (14)
  1. CYCLOPHOSPHAMIDE [Suspect]
     Dosage: 1110 MG
  2. DOXIL [Suspect]
     Dosage: 65 MG
  3. NEULASTA [Suspect]
     Dosage: 6 MG
  4. PREDNISONE [Suspect]
     Dosage: 350 MG
  5. RITUXIMAB (MOAB C2B8 ANTI CD20, CHIMERIC) [Suspect]
     Dosage: 694 MG
  6. VINCRISTINE SULFATE [Suspect]
     Dosage: 2 MG
  7. BONIVA [Concomitant]
  8. CITRACAL [Concomitant]
  9. EFFEXOR [Concomitant]
  10. INDEPERDIME [Concomitant]
  11. LISINOPRIL [Concomitant]
  12. MULTI-VITAMIN [Concomitant]
  13. ZOCOR [Concomitant]
  14. ZOFRAN [Concomitant]

REACTIONS (4)
  - FEBRILE NEUTROPENIA [None]
  - HAEMOGLOBIN DECREASED [None]
  - POLLAKIURIA [None]
  - WHITE BLOOD CELL COUNT DECREASED [None]
